FAERS Safety Report 18666312 (Version 1)
Quarter: 2020Q4

REPORT INFORMATION
  Report Type: Report from Study
  Country: US (occurrence: US)
  Receive Date: 20201226
  Receipt Date: 20201226
  Transmission Date: 20210114
  Serious: No
  Sender: FDA-Public Use
  Company Number: NVSC2020US335607

PATIENT
  Sex: Male

DRUGS (1)
  1. ENTRESTO [Suspect]
     Active Substance: SACUBITRIL\VALSARTAN
     Indication: PRODUCT USED FOR UNKNOWN INDICATION
     Dosage: 100 MG, BID
     Route: 048
     Dates: start: 20201202

REACTIONS (8)
  - Dyspnoea [Unknown]
  - Throat clearing [Unknown]
  - Fluid retention [Not Recovered/Not Resolved]
  - Cough [Unknown]
  - Hyperventilation [Unknown]
  - Abdominal discomfort [Unknown]
  - Chest discomfort [Unknown]
  - Oropharyngeal pain [Unknown]
